FAERS Safety Report 9688454 (Version 3)
Quarter: 2014Q2

REPORT INFORMATION
  Report Type: Report from Study
  Country: US (occurrence: US)
  Receive Date: 20131114
  Receipt Date: 20140417
  Transmission Date: 20141212
  Serious: Yes (Death, Other)
  Sender: FDA-Public Use
  Company Number: US-SA-2013SA116998

PATIENT
  Age: 80 Year
  Sex: Male
  Weight: 68.5 kg

DRUGS (5)
  1. RENVELA [Suspect]
     Indication: HYPERPHOSPHATAEMIA
     Dosage: 2 TABLETS WITH MEALS; 0.8 G
     Route: 048
     Dates: start: 20130401, end: 20130802
  2. VITAMINS [Concomitant]
     Indication: VITAMIN SUPPLEMENTATION
  3. EPOGEN [Concomitant]
     Indication: HAEMATOCRIT DECREASED
     Dosage: 2000 UNITS AFTER EACH DIALYSIS? DOSE:2000 UNIT(S)
     Route: 042
  4. EPOGEN [Concomitant]
     Indication: HAEMOGLOBIN DECREASED
     Dosage: 2000 UNITS AFTER EACH DIALYSIS? DOSE:2000 UNIT(S)
     Route: 042
  5. ZEMPLAR [Concomitant]
     Indication: BLOOD PARATHYROID HORMONE INCREASED
     Route: 042

REACTIONS (3)
  - Hypoalbuminaemia [Unknown]
  - Failure to thrive [Fatal]
  - Disease complication [Fatal]
